FAERS Safety Report 11771856 (Version 1)
Quarter: 2015Q4

REPORT INFORMATION
  Report Type: Spontaneous
  Country: US (occurrence: None)
  Receive Date: 20151123
  Receipt Date: 20151123
  Transmission Date: 20160304
  Serious: Yes (Life-Threatening, Disabling)
  Sender: FDA-Public Use
  Company Number: None

PATIENT
  Age: 74 Year
  Sex: Male
  Weight: 69.85 kg

DRUGS (11)
  1. TYLENOL [Concomitant]
     Active Substance: ACETAMINOPHEN
  2. KELP [Concomitant]
     Active Substance: KELP
  3. LISINOPRIL. [Concomitant]
     Active Substance: LISINOPRIL
  4. TAMSULOSIN 0.4MG [Suspect]
     Active Substance: TAMSULOSIN
     Indication: PROSTATIC DISORDER
     Route: 048
     Dates: start: 20141203, end: 20151120
  5. FINASTERIDE. [Concomitant]
     Active Substance: FINASTERIDE
  6. FOLIC ACID. [Concomitant]
     Active Substance: FOLIC ACID
  7. MYRBETRIQ [Concomitant]
     Active Substance: MIRABEGRON
  8. TAMSULOSIN [Concomitant]
     Active Substance: TAMSULOSIN
  9. MELATONIN [Concomitant]
     Active Substance: MELATONIN
  10. FINASTERIDE 5MG [Suspect]
     Active Substance: FINASTERIDE
     Indication: PROSTATIC DISORDER
     Route: 048
  11. NACL TOOTHPASTE [Concomitant]

REACTIONS (4)
  - Fear [None]
  - Dry mouth [None]
  - Dizziness [None]
  - Activities of daily living impaired [None]
